FAERS Safety Report 15684288 (Version 1)
Quarter: 2018Q4

REPORT INFORMATION
  Report Type: Spontaneous
  Country: US (occurrence: US)
  Receive Date: 20181204
  Receipt Date: 20181204
  Transmission Date: 20190205
  Serious: No
  Sender: FDA-Public Use
  Company Number: US-ALLERGAN-1853409US

PATIENT
  Sex: Male

DRUGS (2)
  1. CLINDAMYCIN PLEDGET [Concomitant]
     Route: 065
  2. ACZONE [Suspect]
     Active Substance: DAPSONE
     Indication: ACNE
     Dosage: UNK
     Route: 061

REACTIONS (2)
  - Application site discolouration [Unknown]
  - Product colour issue [Unknown]
